FAERS Safety Report 7209547-6 (Version None)
Quarter: 2011Q1

REPORT INFORMATION
  Report Type: 
  Country: None (occurrence: None)
  Receive Date: 20110104
  Receipt Date: 20101124
  Transmission Date: 20110831
  Serious: Yes (Other)
  Sender: FDA-Public Use
  Company Number: JP-ASTRAZENECA-2010SE56124

PATIENT
  Age: 72 Year
  Sex: Female

DRUGS (1)
  1. MARCAINE HYDROCHLORIDE PRESERVATIVE FREE [Suspect]
     Route: 029
     Dates: start: 20091201, end: 20091201

REACTIONS (1)
  - ANAPHYLACTIC SHOCK [None]
